FAERS Safety Report 4571803-8 (Version None)
Quarter: 2005Q1

REPORT INFORMATION
  Report Type: 
  Country: None (occurrence: None)
  Receive Date: 20050207
  Receipt Date: 20050114
  Transmission Date: 20050727
  Serious: No
  Sender: FDA-Public Use
  Company Number: JP-MERCK-0501USA02158

PATIENT
  Age: 70 Year
  Sex: Male

DRUGS (4)
  1. PEPCID RPD [Suspect]
     Route: 048
  2. RIMATIL [Concomitant]
     Route: 048
  3. PREDNISOLONE [Concomitant]
     Route: 048
  4. ALFAROL [Concomitant]
     Route: 048

REACTIONS (1)
  - PNEUMONIA BACTERIAL [None]
